FAERS Safety Report 4349866-4 (Version None)
Quarter: 2004Q2

REPORT INFORMATION
  Report Type: 
  Country: None (occurrence: None)
  Receive Date: 20040426
  Receipt Date: 20040415
  Transmission Date: 20050107
  Serious: Yes (Other)
  Sender: FDA-Public Use
  Company Number: DE-JNJFOC-20030904605

PATIENT
  Sex: Female

DRUGS (1)
  1. REMICADE [Suspect]

REACTIONS (6)
  - ABORTION SPONTANEOUS [None]
  - COMPLICATIONS OF MATERNAL EXPOSURE TO THERAPEUTIC DRUGS [None]
  - MATERNAL DRUGS AFFECTING FOETUS [None]
  - TRANSMISSION OF DRUG VIA SEMEN [None]
  - UNWANTED PREGNANCY [None]
  - VAGINAL MYCOSIS [None]
